FAERS Safety Report 12131512 (Version 1)
Quarter: 2016Q1

REPORT INFORMATION
  Report Type: Spontaneous
  Country: US (occurrence: US)
  Receive Date: 20160301
  Receipt Date: 20160301
  Transmission Date: 20160526
  Serious: Yes (Hospitalization, Other)
  Sender: FDA-Public Use
  Company Number: US-PFIZER INC-2016119260

PATIENT
  Age: 57 Year
  Sex: Female
  Weight: 54.88 kg

DRUGS (2)
  1. TRAMADOL. [Suspect]
     Active Substance: TRAMADOL
     Indication: PAIN
     Dosage: 100MG IN THE MORNING AND 100MG AT NIGHT
     Dates: end: 201601
  2. LYRICA [Suspect]
     Active Substance: PREGABALIN
     Indication: FIBROMYALGIA
     Dosage: 300 MG, 2X/DAY
     Route: 048

REACTIONS (6)
  - Speech disorder [Unknown]
  - Drug intolerance [Unknown]
  - Cerebrovascular accident [Unknown]
  - Cerebrovascular accident [Recovered/Resolved]
  - Serotonin syndrome [Recovered/Resolved]
  - Confusional state [Unknown]

NARRATIVE: CASE EVENT DATE: 201412
